FAERS Safety Report 17367205 (Version 1)
Quarter: 2020Q1

REPORT INFORMATION
  Report Type: Report from Study
  Country: ES (occurrence: ES)
  Receive Date: 20200204
  Receipt Date: 20200204
  Transmission Date: 20200409
  Serious: Yes (Death, Hospitalization)
  Sender: FDA-Public Use
  Company Number: ES-MYLANLABS-2020M1011977

PATIENT
  Age: 34 Year
  Sex: Male

DRUGS (9)
  1. CICLOSPORIN [Suspect]
     Active Substance: CYCLOSPORINE
     Indication: BONE MARROW FAILURE
     Dosage: 200 MILLIGRAM, BID
     Route: 048
     Dates: start: 201703, end: 20180310
  2. CICLOFOSFAMIDA [Suspect]
     Active Substance: CYCLOPHOSPHAMIDE
     Indication: BONE MARROW CONDITIONING REGIMEN
     Dosage: 2181 MILLIGRAM, TOTAL
     Route: 042
     Dates: start: 20180118, end: 20180122
  3. FUROSEMIDA                         /00032601/ [Concomitant]
     Active Substance: FUROSEMIDE
     Dosage: UNK
     Dates: start: 20180117
  4. FOLINATO CALCICO [Concomitant]
     Active Substance: LEUCOVORIN CALCIUM
     Dosage: UNK
     Dates: start: 20180127, end: 20180205
  5. RANITIDINA                         /00550801/ [Concomitant]
     Dosage: UNK
     Dates: start: 20180123
  6. FLUDARABINA                        /01004601/ [Suspect]
     Active Substance: FLUDARABINE PHOSPHATE
     Indication: BONE MARROW CONDITIONING REGIMEN
     Dosage: 53.1 MILLIGRAM, TOTAL
     Route: 042
     Dates: start: 20180118, end: 20180121
  7. MESNA. [Concomitant]
     Active Substance: MESNA
     Dosage: UNK
     Dates: start: 20180117
  8. METHOTREXATE. [Suspect]
     Active Substance: METHOTREXATE
     Indication: PRODUCT USED FOR UNKNOWN INDICATION
     Dosage: UNK
     Route: 065
     Dates: start: 20180124, end: 20180204
  9. TIMOGLOBULINA                      /00575401/ [Suspect]
     Active Substance: THYMOCYTE IMMUNE GLOBULIN NOS
     Indication: BONE MARROW CONDITIONING REGIMEN
     Dosage: 180 MILLIGRAM, TOTAL
     Route: 042
     Dates: start: 20180120, end: 20180122

REACTIONS (1)
  - Thrombotic microangiopathy [Fatal]

NARRATIVE: CASE EVENT DATE: 20180227
